FAERS Safety Report 13832935 (Version 3)
Quarter: 2017Q3

REPORT INFORMATION
  Report Type: Spontaneous
  Country: FR (occurrence: FR)
  Receive Date: 20170804
  Receipt Date: 20170824
  Transmission Date: 20171127
  Serious: Yes (Life-Threatening, Hospitalization, Other)
  Sender: FDA-Public Use
  Company Number: FR-009507513-1708FRA001959

PATIENT
  Age: 54 Year
  Sex: Female

DRUGS (4)
  1. DEPAKINE CHRONO [Suspect]
     Active Substance: VALPROATE SODIUM
     Indication: EPILEPSY
     Dosage: 1 TABLET, BID
     Route: 048
     Dates: start: 20170505, end: 20170519
  2. CETIRIZINE HYDROCHLORIDE. [Suspect]
     Active Substance: CETIRIZINE HYDROCHLORIDE
     Dosage: 1-2 TABLETS QD IF NEEDED
     Dates: start: 20170425, end: 20170519
  3. STROMECTOL [Suspect]
     Active Substance: IVERMECTIN
     Indication: SCAB
     Dosage: 1 DOSE, ONCE
     Route: 048
     Dates: start: 20170510, end: 20170510
  4. CETIRIZINE HYDROCHLORIDE. [Suspect]
     Active Substance: CETIRIZINE HYDROCHLORIDE
     Indication: SCAB
     Dosage: 1 TABLET QD UNTIL 24-APR-2017
     Route: 048
     Dates: start: 20170419, end: 20170424

REACTIONS (1)
  - Drug reaction with eosinophilia and systemic symptoms [Recovered/Resolved]

NARRATIVE: CASE EVENT DATE: 20170520
